FAERS Safety Report 7799442-6 (Version None)
Quarter: 2011Q4

REPORT INFORMATION
  Report Type: 
  Country: None (occurrence: None)
  Receive Date: 20111006
  Receipt Date: 20110927
  Transmission Date: 20120403
  Serious: Yes (Death, Life-Threatening, Other)
  Sender: FDA-Public Use
  Company Number: JP-GENZYME-THYM-1001759

PATIENT
  Sex: Female
  Weight: 41 kg

DRUGS (26)
  1. GANCICLOVIR [Concomitant]
     Indication: INFECTION PROPHYLAXIS
     Dosage: UNK
     Route: 065
     Dates: start: 20090105, end: 20100122
  2. THYMOGLOBULIN [Suspect]
     Indication: BONE MARROW CONDITIONING REGIMEN
     Dosage: 50 MG, QD
     Route: 042
     Dates: start: 20090426, end: 20090429
  3. PIPERACILLIN W [Concomitant]
     Indication: INFECTION PROPHYLAXIS
     Dosage: UNK
     Route: 065
     Dates: start: 20091017, end: 20100114
  4. FLUDARA [Concomitant]
     Indication: BONE MARROW CONDITIONING REGIMEN
     Dosage: UNK
     Route: 065
     Dates: start: 20090928, end: 20091003
  5. TACROLIMUS [Concomitant]
     Dosage: UNK
     Route: 065
     Dates: start: 20091002
  6. MEROPENEM [Concomitant]
     Indication: INFECTION PROPHYLAXIS
     Dosage: UNK
     Route: 065
     Dates: start: 20091127, end: 20091231
  7. TACROLIMUS [Concomitant]
     Indication: PROPHYLAXIS AGAINST GRAFT VERSUS HOST DISEASE
     Dosage: UNK
     Route: 065
     Dates: start: 20091002, end: 20100122
  8. MICAFUNGIN SODIUM [Concomitant]
     Indication: ANTIFUNGAL PROPHYLAXIS
     Dosage: UNK
     Route: 065
     Dates: start: 20091030, end: 20091217
  9. PIPERACILLIN W [Concomitant]
     Dosage: UNK
     Route: 065
     Dates: start: 20091017
  10. METHYLPREDNISOLONE [Concomitant]
     Indication: PROPHYLAXIS AGAINST GRAFT VERSUS HOST DISEASE
     Dosage: UNK
     Route: 065
     Dates: start: 20090830, end: 20100122
  11. THYMOGLOBULIN [Suspect]
     Dosage: 40 MG, QD
     Route: 042
     Dates: start: 20091211, end: 20091213
  12. MELPHALAN HYDROCHLORIDE [Concomitant]
     Dosage: UNK
     Route: 065
     Dates: start: 20091210, end: 20091211
  13. ITRACONAZOLE [Concomitant]
     Indication: ANTIFUNGAL PROPHYLAXIS
     Dosage: UNK
     Route: 065
     Dates: start: 20090925, end: 20091016
  14. CIPROFLOXACIN HYDROCHLORIDE [Concomitant]
     Indication: INFECTION PROPHYLAXIS
     Dosage: UNK
     Route: 065
     Dates: start: 20090930, end: 20091015
  15. CEFOZOPRAN HYDROCHLORIDE [Concomitant]
     Dosage: UNK
     Route: 065
     Dates: start: 20091010, end: 20100122
  16. VORICONAZOLE [Concomitant]
     Indication: ANTIFUNGAL PROPHYLAXIS
     Dosage: UNK
     Route: 065
     Dates: start: 20091218, end: 20100103
  17. CEFOZOPRAN HYDROCHLORIDE [Concomitant]
     Indication: INFECTION PROPHYLAXIS
     Dosage: UNK
     Route: 065
     Dates: start: 20091010, end: 20091119
  18. THYMOGLOBULIN [Suspect]
     Dosage: 40 MG, QD
     Route: 042
     Dates: start: 20091002, end: 20091003
  19. FLUDARA [Concomitant]
     Dosage: UNK
     Route: 065
     Dates: start: 20091206, end: 20091211
  20. CYTARABINE [Concomitant]
     Indication: BONE MARROW CONDITIONING REGIMEN
     Dosage: UNK
     Route: 065
     Dates: start: 20090928, end: 20090929
  21. CYTARABINE [Concomitant]
     Dosage: UNK
     Route: 065
     Dates: start: 20091206, end: 20091209
  22. MELPHALAN HYDROCHLORIDE [Concomitant]
     Indication: BONE MARROW CONDITIONING REGIMEN
     Dosage: UNK
     Route: 065
     Dates: start: 20090930, end: 20091001
  23. MICAFUNGIN SODIUM [Concomitant]
     Dosage: UNK
     Route: 065
     Dates: start: 20091030
  24. LEVOFLOXACIN [Concomitant]
     Indication: INFECTION PROPHYLAXIS
     Dosage: UNK
     Route: 065
     Dates: start: 20091106, end: 20091107
  25. DORIPENEM HYDRATE [Concomitant]
     Indication: INFECTION PROPHYLAXIS
     Dosage: UNK
     Route: 065
     Dates: start: 20090920, end: 20091015
  26. METHYLPREDNISOLONE [Concomitant]
     Indication: PREMEDICATION
     Dosage: UNK
     Route: 065
     Dates: start: 20090830

REACTIONS (5)
  - ACUTE MYELOID LEUKAEMIA [None]
  - ACUTE GRAFT VERSUS HOST DISEASE [None]
  - THROMBOTIC MICROANGIOPATHY [None]
  - SEPSIS [None]
  - MULTI-ORGAN FAILURE [None]
